FAERS Safety Report 25159448 (Version 1)
Quarter: 2025Q2

REPORT INFORMATION
  Report Type: Spontaneous
  Country: US (occurrence: US)
  Receive Date: 20250404
  Receipt Date: 20250404
  Transmission Date: 20250717
  Serious: Yes (Hospitalization, Other)
  Sender: APOTEX
  Company Number: US-APOTEX-2025AP004235

PATIENT
  Age: 60 Year
  Sex: Male

DRUGS (1)
  1. CITALOPRAM [Suspect]
     Active Substance: CITALOPRAM
     Indication: Product used for unknown indication
     Route: 065

REACTIONS (12)
  - Overdose [Unknown]
  - Respiratory distress [Unknown]
  - Intestinal pseudo-obstruction [Unknown]
  - Fall [Unknown]
  - Musculoskeletal chest pain [Unknown]
  - Pain [Unknown]
  - Abdominal distension [Unknown]
  - Flatulence [Unknown]
  - Tachycardia [Unknown]
  - Suicide attempt [Unknown]
  - Myoclonus [Unknown]
  - Pyrexia [Unknown]
